FAERS Safety Report 13370072 (Version 1)
Quarter: 2017Q1

REPORT INFORMATION
  Report Type: Spontaneous
  Country: NP (occurrence: NP)
  Receive Date: 20170324
  Receipt Date: 20170324
  Transmission Date: 20170429
  Serious: Yes (Life-Threatening, Hospitalization, Other)
  Sender: FDA-Public Use
  Company Number: NP-MYLANLABS-2017M1018197

PATIENT

DRUGS (1)
  1. IBUPROFEN. [Suspect]
     Active Substance: IBUPROFEN
     Indication: PATENT DUCTUS ARTERIOSUS
     Dosage: LOADING DOSE: 10 MG/KG
     Route: 048

REACTIONS (3)
  - Hyponatraemia [Unknown]
  - Gastrointestinal haemorrhage [Recovered/Resolved]
  - Convulsion neonatal [Unknown]
